FAERS Safety Report 6971693-X (Version None)
Quarter: 2010Q3

REPORT INFORMATION
  Report Type: 
  Country: None (occurrence: None)
  Receive Date: 20100908
  Receipt Date: 20091208
  Transmission Date: 20110219
  Serious: No
  Sender: FDA-Public Use
  Company Number: US-PFIZER INC-2009308811

PATIENT
  Sex: Female

DRUGS (3)
  1. NARDIL [Suspect]
     Indication: DEPRESSION
     Dosage: FREQUENCY: 3X/DAY,
     Route: 048
     Dates: start: 20090601
  2. TRAZODONE [Concomitant]
     Dosage: 150 MG, 1X/DAY
     Route: 048
  3. VESICARE [Concomitant]
     Dosage: 5 MG, 1X/DAY
     Route: 048

REACTIONS (1)
  - DRUG INEFFECTIVE [None]
